FAERS Safety Report 11205691 (Version 1)
Quarter: 2015Q2

REPORT INFORMATION
  Report Type: Spontaneous
  Country: US (occurrence: None)
  Receive Date: 20150618
  Receipt Date: 20150618
  Transmission Date: 20150821
  Serious: No
  Sender: FDA-Public Use
  Company Number: None

PATIENT
  Age: 42 Year
  Sex: Female

DRUGS (1)
  1. HUMIRA [Suspect]
     Active Substance: ADALIMUMAB
     Dosage: 40MH WEEKLY SUB-Q
     Route: 058
     Dates: start: 20150420

REACTIONS (1)
  - Speech disorder [None]

NARRATIVE: CASE EVENT DATE: 20150517
